FAERS Safety Report 11099067 (Version 2)
Quarter: 2016Q1

REPORT INFORMATION
  Report Type: Report from Study
  Country: GB (occurrence: GB)
  Receive Date: 20150508
  Receipt Date: 20160126
  Transmission Date: 20160525
  Serious: Yes (Other)
  Sender: FDA-Public Use
  Company Number: GB-ROCHE-1574774

PATIENT
  Age: 40 Year
  Sex: Female

DRUGS (1)
  1. RITUXIMAB [Suspect]
     Active Substance: RITUXIMAB
     Indication: ALLERGIC GRANULOMATOUS ANGIITIS
     Route: 042

REACTIONS (1)
  - Thymoma [Unknown]
